FAERS Safety Report 24257256 (Version 1)
Quarter: 2024Q3

REPORT INFORMATION
  Report Type: Spontaneous
  Country: US (occurrence: US)
  Receive Date: 20240828
  Receipt Date: 20240828
  Transmission Date: 20241017
  Serious: No
  Sender: PHARMAESSENTIA
  Company Number: US-PHARMAESSENTIA CORPORATION-US-2024-PEC-004098

PATIENT
  Sex: Female

DRUGS (11)
  1. BESREMI [Suspect]
     Active Substance: ROPEGINTERFERON ALFA-2B-NJFT
     Indication: Polycythaemia vera
     Dosage: 100 MCG, Q2W
     Route: 065
     Dates: start: 20221004
  2. BESREMI [Suspect]
     Active Substance: ROPEGINTERFERON ALFA-2B-NJFT
     Dosage: 200 MCG, Q2W
     Route: 065
     Dates: start: 20230423
  3. BESREMI [Suspect]
     Active Substance: ROPEGINTERFERON ALFA-2B-NJFT
     Dosage: 200 MCG, WEEKLY
     Route: 065
     Dates: start: 20230701
  4. BESREMI [Suspect]
     Active Substance: ROPEGINTERFERON ALFA-2B-NJFT
     Dosage: 250 MCG
     Route: 065
     Dates: start: 20231003
  5. BESREMI [Suspect]
     Active Substance: ROPEGINTERFERON ALFA-2B-NJFT
     Dosage: 300 MCG
     Route: 065
     Dates: start: 20231204
  6. BESREMI [Suspect]
     Active Substance: ROPEGINTERFERON ALFA-2B-NJFT
     Dosage: 350 MCG
     Route: 065
     Dates: start: 20240223
  7. HYDREA [Suspect]
     Active Substance: HYDROXYUREA
     Indication: Haematocrit increased
     Dosage: UNK
     Route: 065
     Dates: start: 20230111, end: 20230308
  8. HYDREA [Suspect]
     Active Substance: HYDROXYUREA
     Dosage: UNK
     Route: 065
     Dates: start: 2023, end: 20230423
  9. HYDREA [Suspect]
     Active Substance: HYDROXYUREA
     Dosage: 100 MG, BID
     Route: 065
     Dates: start: 20230621
  10. HYDREA [Suspect]
     Active Substance: HYDROXYUREA
     Dosage: 100 MG, QD
     Route: 065
     Dates: start: 20240403, end: 20240513
  11. RUXOLITINIB [Suspect]
     Active Substance: RUXOLITINIB
     Indication: Haematocrit increased
     Dosage: 10 MG, BID
     Route: 065
     Dates: start: 20230308, end: 20230423

REACTIONS (7)
  - Laboratory test abnormal [Not Recovered/Not Resolved]
  - Haematocrit increased [Recovered/Resolved]
  - Therapy partial responder [Unknown]
  - Drug intolerance [Unknown]
  - Venipuncture [Unknown]
  - Platelet count increased [Not Recovered/Not Resolved]
  - Inappropriate schedule of product administration [Unknown]

NARRATIVE: CASE EVENT DATE: 20230101
